FAERS Safety Report 11325515 (Version 6)
Quarter: 2016Q1

REPORT INFORMATION
  Report Type: Report from Study
  Country: US (occurrence: US)
  Receive Date: 20150731
  Receipt Date: 20160304
  Transmission Date: 20160525
  Serious: No
  Sender: FDA-Public Use
  Company Number: US-AMGEN-USASP2015076850

PATIENT
  Age: 60 Year
  Sex: Female
  Weight: 77.98 kg

DRUGS (1)
  1. ENBREL [Suspect]
     Active Substance: ETANERCEPT
     Indication: RHEUMATOID ARTHRITIS
     Dosage: 50 MG X 1 WEEKLY
     Route: 058
     Dates: start: 201406

REACTIONS (6)
  - Device issue [Unknown]
  - Needle issue [Unknown]
  - Pain [Unknown]
  - Diarrhoea [Unknown]
  - Drug dose omission [Unknown]
  - Arthralgia [Unknown]

NARRATIVE: CASE EVENT DATE: 201412
